FAERS Safety Report 8076694-9 (Version None)
Quarter: 2012Q1

REPORT INFORMATION
  Report Type: 
  Country: None (occurrence: None)
  Receive Date: 20120127
  Receipt Date: 20120123
  Transmission Date: 20120608
  Serious: Yes (Hospitalization)
  Sender: FDA-Public Use
  Company Number: FI-ABBOTT-12P-055-0895082-00

PATIENT
  Sex: Male

DRUGS (1)
  1. PROCREN DEPOT PDS [Suspect]
     Indication: PROSTATE CANCER

REACTIONS (1)
  - HOSPITALISATION [None]
